FAERS Safety Report 20716694 (Version 2)
Quarter: 2022Q2

REPORT INFORMATION
  Report Type: Spontaneous
  Country: US (occurrence: None)
  Receive Date: 20220416
  Receipt Date: 20220502
  Transmission Date: 20220721
  Serious: Yes (Death)
  Sender: FDA-Public Use
  Company Number: US-ROCHE-3077913

PATIENT
  Sex: Male

DRUGS (2)
  1. ACTEMRA [Suspect]
     Active Substance: TOCILIZUMAB
     Indication: Connective tissue disorder
     Dosage: 162MG/0.9M
     Route: 058
     Dates: start: 202203
  2. ACTEMRA [Suspect]
     Active Substance: TOCILIZUMAB

REACTIONS (2)
  - Death [Fatal]
  - Off label use [Unknown]
